FAERS Safety Report 4721629-7 (Version None)
Quarter: 2005Q3

REPORT INFORMATION
  Report Type: 
  Country: None (occurrence: None)
  Receive Date: 20050721
  Receipt Date: 20050124
  Transmission Date: 20060218
  Serious: Yes (Hospitalization, Other)
  Sender: FDA-Public Use
  Company Number: US-BRISTOL-MYERS SQUIBB COMPANY-12836359

PATIENT
  Age: 86 Year
  Sex: Male

DRUGS (4)
  1. COUMADIN [Suspect]
     Indication: PROPHYLAXIS
  2. LOVENOX [Suspect]
     Indication: PROPHYLAXIS
     Route: 058
     Dates: start: 20041201
  3. ROCEPHIN [Concomitant]
     Indication: PNEUMONIA
  4. ZITHROMAX [Concomitant]
     Indication: PNEUMONIA

REACTIONS (1)
  - MUSCLE HAEMORRHAGE [None]
